FAERS Safety Report 18833569 (Version 1)
Quarter: 2021Q1

REPORT INFORMATION
  Report Type: Spontaneous
  Country: US (occurrence: US)
  Receive Date: 20210203
  Receipt Date: 20210203
  Transmission Date: 20210419
  Serious: No
  Sender: FDA-Public Use
  Company Number: US-ALLERGAN-2007890US

PATIENT
  Age: 64 Year
  Sex: Female

DRUGS (3)
  1. BOTOX [Suspect]
     Active Substance: ONABOTULINUMTOXINA
     Indication: ESSENTIAL TREMOR
  2. CHOLESTEROL MEDICATION [Concomitant]
     Active Substance: UNSPECIFIED INGREDIENT
  3. BOTOX [Suspect]
     Active Substance: ONABOTULINUMTOXINA
     Indication: TORTICOLLIS
     Dosage: UNK, SINGLE
     Dates: start: 20200121, end: 20200121

REACTIONS (8)
  - Conversion disorder [Not Recovered/Not Resolved]
  - Dyspnoea [Not Recovered/Not Resolved]
  - Injection site pain [Not Recovered/Not Resolved]
  - Drooling [Not Recovered/Not Resolved]
  - Tremor [Not Recovered/Not Resolved]
  - Impaired work ability [Unknown]
  - Off label use [Unknown]
  - Head titubation [Not Recovered/Not Resolved]

NARRATIVE: CASE EVENT DATE: 20200121
